FAERS Safety Report 24117461 (Version 1)
Quarter: 2024Q3

REPORT INFORMATION
  Report Type: Spontaneous
  Country: FR (occurrence: FR)
  Receive Date: 20240722
  Receipt Date: 20240722
  Transmission Date: 20241016
  Serious: Yes (Other)
  Sender: CELLTRION
  Company Number: FR-CELLTRION INC.-2024FR017255

PATIENT

DRUGS (1)
  1. INFLIXIMAB [Suspect]
     Active Substance: INFLIXIMAB
     Indication: Takayasu^s arteritis
     Dosage: 5 MG/KG
     Route: 042
     Dates: start: 202212, end: 202311

REACTIONS (2)
  - Hepatic cytolysis [Not Recovered/Not Resolved]
  - Intentional product use issue [Unknown]

NARRATIVE: CASE EVENT DATE: 20231115
